FAERS Safety Report 8936655 (Version 1)
Quarter: 2012Q4

REPORT INFORMATION
  Report Type: 
  Country: CA (occurrence: CA)
  Receive Date: 20121130
  Receipt Date: 20121130
  Transmission Date: 20130627
  Serious: Yes (Hospitalization, Other)
  Sender: FDA-Public Use
  Company Number: CA-ASTRAZENECA-2012SE88818

PATIENT
  Age: 70 Year
  Sex: Male
  Weight: 117.9 kg

DRUGS (15)
  1. CRESTOR [Suspect]
     Route: 048
  2. LIPIDIL [Suspect]
     Route: 048
  3. ACETAMINOPHEN AND CODEINE [Concomitant]
     Route: 065
  4. ASA [Concomitant]
     Route: 065
  5. CLARITHROMYCIN [Concomitant]
     Route: 065
  6. DILTIAZEM ER [Concomitant]
     Route: 065
  7. FUROSEMIDE [Concomitant]
     Route: 065
  8. GLYBURIDE [Concomitant]
     Route: 065
  9. PERINDOPRIL [Concomitant]
     Route: 065
  10. RABEPRAZOLE [Concomitant]
     Route: 065
  11. SALBUTAMOL [Concomitant]
     Route: 065
  12. SPIRIVA [Concomitant]
     Route: 065
  13. SYMBICORT 200 TURBUHALER [Concomitant]
     Route: 065
  14. TAMSULOSIN [Concomitant]
     Route: 065
  15. WARFARIN [Concomitant]
     Route: 065

REACTIONS (5)
  - Depressed level of consciousness [Unknown]
  - Hypotension [Unknown]
  - Pneumonia [Unknown]
  - Renal failure acute [Unknown]
  - Rhabdomyolysis [Unknown]
